FAERS Safety Report 9692681 (Version 1)
Quarter: 2013Q4

REPORT INFORMATION
  Report Type: Spontaneous
  Country: DE (occurrence: DE)
  Receive Date: 20131118
  Receipt Date: 20131118
  Transmission Date: 20140711
  Serious: Yes (Other)
  Sender: FDA-Public Use
  Company Number: PHHY2013DE130697

PATIENT
  Sex: Female

DRUGS (2)
  1. TEGRETAL [Suspect]
     Indication: TRIGEMINAL NEURALGIA
     Dosage: 200 MG, UNK
     Route: 048
     Dates: start: 201307
  2. TEGRETAL [Suspect]
     Indication: HEADACHE

REACTIONS (3)
  - Nervous system disorder [Unknown]
  - Mucous membrane disorder [Unknown]
  - Retinal detachment [Unknown]
